FAERS Safety Report 8489997-0 (Version None)
Quarter: 2012Q3

REPORT INFORMATION
  Report Type: 
  Country: None (occurrence: None)
  Receive Date: 20120705
  Receipt Date: 20120626
  Transmission Date: 20120928
  Serious: Yes (Hospitalization, Other)
  Sender: FDA-Public Use
  Company Number: ES-JNJFOC-20120613688

PATIENT
  Age: 62 Year
  Sex: Female

DRUGS (9)
  1. CYCLOPHOSPHAMIDE [Suspect]
     Indication: BREAST CANCER
     Route: 065
  2. CYCLOPHOSPHAMIDE [Suspect]
     Route: 065
  3. DOXORUBICIN HCL [Suspect]
     Indication: BREAST CANCER
     Route: 042
  4. DOXORUBICIN HCL [Suspect]
     Route: 042
  5. OMEPRAZOLE [Concomitant]
     Indication: PROPHYLAXIS
     Route: 065
  6. DEXAMETHASONE SODIUM PHOSPHATE [Suspect]
     Indication: PROPHYLAXIS
     Route: 065
  7. ANASTROZOLE [Concomitant]
     Indication: HORMONE THERAPY
     Route: 065
  8. DEXAMETHASONE SODIUM PHOSPHATE [Suspect]
     Route: 065
  9. CHLORHEXIDINE GLUCONATE [Concomitant]
     Indication: PROPHYLAXIS
     Route: 002

REACTIONS (6)
  - RHINITIS [None]
  - SWELLING FACE [None]
  - PARAESTHESIA [None]
  - MYOPATHY [None]
  - ACCIDENTAL OVERDOSE [None]
  - OSTEONECROSIS OF JAW [None]
